FAERS Safety Report 13026110 (Version 1)
Quarter: 2016Q4

REPORT INFORMATION
  Report Type: Spontaneous
  Country: US (occurrence: US)
  Receive Date: 20161213
  Receipt Date: 20161213
  Transmission Date: 20170207
  Serious: Yes (Disabling)
  Sender: FDA-Public Use
  Company Number: None

PATIENT
  Sex: Female
  Weight: 63 kg

DRUGS (14)
  1. CIPRO [Suspect]
     Active Substance: CIPROFLOXACIN HYDROCHLORIDE
     Indication: SINUSITIS
     Route: 048
     Dates: start: 20131201
  2. AVELOX [Suspect]
     Active Substance: MOXIFLOXACIN HYDROCHLORIDE
  3. MAGNESIUM [Concomitant]
     Active Substance: MAGNESIUM
  4. PAMALOR [Concomitant]
  5. VIT. D3 [Concomitant]
  6. CALCIUM [Concomitant]
     Active Substance: CALCIUM
  7. LEVAQUIN [Suspect]
     Active Substance: LEVOFLOXACIN
  8. MULTIPLE VITAMIN SUPPLEMENT [Concomitant]
  9. FIORICET [Concomitant]
     Active Substance: ACETAMINOPHEN\BUTALBITAL\CAFFEINE
  10. LEVOTHYROXINE. [Concomitant]
     Active Substance: LEVOTHYROXINE
  11. RELPAX [Concomitant]
     Active Substance: ELETRIPTAN HYDROBROMIDE
  12. ESTRADIOL. [Concomitant]
     Active Substance: ESTRADIOL
  13. PROGESTERONE SR [Concomitant]
  14. MELOXICAN [Concomitant]
     Active Substance: MELOXICAM

REACTIONS (22)
  - Paraesthesia [None]
  - Depression [None]
  - Tachycardia [None]
  - Multiple chemical sensitivity [None]
  - Fatigue [None]
  - Anxiety [None]
  - Asthenia [None]
  - Musculoskeletal stiffness [None]
  - Visual impairment [None]
  - Depressed level of consciousness [None]
  - Hypothyroidism [None]
  - Photosensitivity reaction [None]
  - Hyperaesthesia [None]
  - Neck pain [None]
  - Back pain [None]
  - Dry eye [None]
  - Gingival pain [None]
  - Fibromyalgia [None]
  - Arthralgia [None]
  - Migraine [None]
  - Amnesia [None]
  - Temperature intolerance [None]
